FAERS Safety Report 26045836 (Version 1)
Quarter: 2025Q4

REPORT INFORMATION
  Report Type: Spontaneous
  Country: GB (occurrence: GB)
  Receive Date: 20251114
  Receipt Date: 20251114
  Transmission Date: 20260117
  Serious: Yes (Hospitalization, Other)
  Sender: PHARMACOSMOS A/S
  Company Number: None

PATIENT
  Age: 1 Year

DRUGS (1)
  1. IRON ISOMALTOSIDE 1000 [Suspect]
     Active Substance: IRON ISOMALTOSIDE 1000
     Indication: Anaemia
     Dates: start: 20250611, end: 20250611

REACTIONS (7)
  - Skin injury [Unknown]
  - Dyspnoea [Unknown]
  - Foetal exposure during pregnancy [Recovered/Resolved]
  - Weight decreased [Unknown]
  - Bradycardia foetal [Not Recovered/Not Resolved]
  - Jaundice [Unknown]
  - Carbon dioxide increased [Unknown]

NARRATIVE: CASE EVENT DATE: 20250611
